FAERS Safety Report 7108718-7 (Version None)
Quarter: 2010Q4

REPORT INFORMATION
  Report Type: 
  Country: None (occurrence: None)
  Receive Date: 20101117
  Receipt Date: 20101111
  Transmission Date: 20110411
  Serious: Yes (Other)
  Sender: FDA-Public Use
  Company Number: IE-PFIZER INC-2010147835

PATIENT
  Age: 43 Year
  Sex: Female

DRUGS (2)
  1. LYRICA [Suspect]
     Indication: IRRITABLE BOWEL SYNDROME
     Dosage: 75 MG, UNK
     Dates: start: 20090401, end: 20090601
  2. LYRICA [Suspect]
     Indication: OFF LABEL USE
     Dosage: 100 MG, UNK
     Dates: start: 20090801

REACTIONS (12)
  - CONFUSIONAL STATE [None]
  - DYSSTASIA [None]
  - FEELING COLD [None]
  - HEADACHE [None]
  - IMPAIRED WORK ABILITY [None]
  - MENTAL DISORDER [None]
  - MUSCULAR WEAKNESS [None]
  - MYALGIA [None]
  - PAIN IN EXTREMITY [None]
  - QUALITY OF LIFE DECREASED [None]
  - SWOLLEN TONGUE [None]
  - VISION BLURRED [None]
